FAERS Safety Report 9211049 (Version 1)
Quarter: 2013Q2

REPORT INFORMATION
  Report Type: Spontaneous
  Country: US (occurrence: US)
  Receive Date: 20130404
  Receipt Date: 20130404
  Transmission Date: 20140414
  Serious: Yes (Hospitalization, Other)
  Sender: FDA-Public Use
  Company Number: US-WATSON-2013-05897

PATIENT
  Sex: Female
  Weight: 55 kg

DRUGS (2)
  1. NICOTINE POLACRILEX [Suspect]
     Indication: SMOKING CESSATION THERAPY
     Dosage: APPROXIMATELY 6 PIECES PER DAY
     Route: 002
     Dates: start: 20130311
  2. NICOTINE POLACRILEX [Suspect]
     Dosage: APPROXIMATELY 6 PIECES PER DAY
     Route: 002
     Dates: start: 2012, end: 20130310

REACTIONS (8)
  - Large intestine polyp [Unknown]
  - Colorectal cancer [Unknown]
  - Gastric ulcer [Not Recovered/Not Resolved]
  - Alopecia [Not Recovered/Not Resolved]
  - Joint swelling [Not Recovered/Not Resolved]
  - Oral pain [Not Recovered/Not Resolved]
  - Back pain [Not Recovered/Not Resolved]
  - Nicotine dependence [Not Recovered/Not Resolved]
